FAERS Safety Report 6143848-8 (Version None)
Quarter: 2009Q2

REPORT INFORMATION
  Report Type: 
  Country: None (occurrence: None)
  Receive Date: 20090403
  Receipt Date: 20090326
  Transmission Date: 20091009
  Serious: Yes (Death)
  Sender: FDA-Public Use
  Company Number: MX-MERCK-0903MEX00015

PATIENT
  Age: 80 Year
  Sex: Male

DRUGS (1)
  1. TIMOPTIC [Suspect]
     Route: 065

REACTIONS (3)
  - BRADYCARDIA [None]
  - DEATH [None]
  - EXTRASYSTOLES [None]
